FAERS Safety Report 21041304 (Version 1)
Quarter: 2022Q3

REPORT INFORMATION
  Report Type: Spontaneous
  Country: FR (occurrence: FR)
  Receive Date: 20220705
  Receipt Date: 20220705
  Transmission Date: 20221027
  Serious: Yes (Other)
  Sender: FDA-Public Use
  Company Number: FR-BRISTOL-MYERS SQUIBB COMPANY-2022-059658

PATIENT
  Age: 26 Year
  Sex: Female

DRUGS (14)
  1. CEFTAZIDIME [Suspect]
     Active Substance: CEFTAZIDIME
     Indication: Infection
     Dosage: 5 GRAM, TWO TIMES A DAY
     Route: 065
     Dates: start: 20200119, end: 20210127
  2. OMEPRAZOLE [Suspect]
     Active Substance: OMEPRAZOLE
     Indication: Product used for unknown indication
     Dosage: 40 MILLIGRAM, TWO TIMES A DAY
     Route: 065
     Dates: end: 20210202
  3. AZACTAM [Suspect]
     Active Substance: AZTREONAM
     Indication: Product used for unknown indication
     Dosage: 1 GRAM
     Route: 065
  4. AZACTAM [Suspect]
     Active Substance: AZTREONAM
     Dosage: 6 GRAM
     Route: 065
     Dates: start: 20210127, end: 20210202
  5. TRIKAFTA [Suspect]
     Active Substance: ELEXACAFTOR\IVACAFTOR\TEZACAFTOR
     Dosage: UNK
     Route: 065
     Dates: end: 20210202
  6. CREON [Suspect]
     Active Substance: PANCRELIPASE AMYLASE\PANCRELIPASE LIPASE\PANCRELIPASE PROTEASE
     Dosage: 1 DOSAGE FORM, ONCE A DAY,11 TO 16 CAPS DAILY
     Route: 065
     Dates: end: 20210202
  7. CALCIUM PHOSPHATE, DIBASIC, ANHYDROUS\MAGNESIUM GLYCEROPHOSPHATE\PHOSP [Concomitant]
     Active Substance: CALCIUM PHOSPHATE, DIBASIC, ANHYDROUS\MAGNESIUM GLYCEROPHOSPHATE\PHOSPHORIC ACID\SODIUM PHOSPHATE, D
     Dosage: 200 GTT DROPS
     Route: 065
  8. BRICANYL [Concomitant]
     Active Substance: TERBUTALINE SULFATE
     Dosage: UNK,2 INHALATIONS IF NEEDED
     Route: 065
  9. INSULIN NOS [Concomitant]
     Active Substance: INSULIN NOS
     Dosage: 200 GTT DROPS
     Route: 065
  10. .ALPHA.-TOCOPHEROL ACETATE, D- [Concomitant]
     Active Substance: .ALPHA.-TOCOPHEROL ACETATE, D-
     Dosage: UNK
     Route: 065
  11. PANCREATIN [Concomitant]
     Active Substance: PANCRELIPASE
     Dosage: UNK,160, 000 UI/D
     Route: 065
  12. Phosphates [Concomitant]
     Dosage: UNK
     Route: 048
  13. CEFTAZIDIME [Concomitant]
     Active Substance: CEFTAZIDIME
     Dosage: UNK
     Route: 065
     Dates: start: 20200922
  14. KALYDECO [Concomitant]
     Active Substance: IVACAFTOR
     Dosage: UNK
     Route: 048
     Dates: start: 2020

REACTIONS (2)
  - Premature delivery [Unknown]
  - Maternal exposure during pregnancy [Recovered/Resolved]

NARRATIVE: CASE EVENT DATE: 20210202
